FAERS Safety Report 20744563 (Version 1)
Quarter: 2022Q2

REPORT INFORMATION
  Report Type: Spontaneous
  Country: US (occurrence: None)
  Receive Date: 20220422
  Receipt Date: 20220422
  Transmission Date: 20220721
  Serious: Yes (Other)
  Sender: FDA-Public Use
  Company Number: None

PATIENT
  Sex: Female

DRUGS (2)
  1. ATORVASTATIN [Suspect]
     Active Substance: ATORVASTATIN
     Indication: Cerebral arteriosclerosis
  2. ZOCOR [Suspect]
     Active Substance: SIMVASTATIN
     Indication: Cerebral arteriosclerosis

REACTIONS (1)
  - Depressed level of consciousness [None]
